FAERS Safety Report 20893465 (Version 1)
Quarter: 2022Q2

REPORT INFORMATION
  Report Type: Spontaneous
  Country: ES (occurrence: ES)
  Receive Date: 20220531
  Receipt Date: 20220531
  Transmission Date: 20220720
  Serious: Yes (Life-Threatening, Hospitalization, Other)
  Sender: FDA-Public Use
  Company Number: ES-VIFOR-ENA.21.001

PATIENT
  Age: 66 Year
  Sex: Male

DRUGS (1)
  1. ENALAPRIL [Suspect]
     Active Substance: ENALAPRIL
     Indication: Hypertension
     Dosage: UNK (LAST 14 YEARS)
     Route: 065

REACTIONS (6)
  - Angioedema [Unknown]
  - Obstructive airways disorder [Unknown]
  - Dyspnoea [Unknown]
  - Lip oedema [Unknown]
  - Dysphagia [Unknown]
  - Tongue oedema [Unknown]
